FAERS Safety Report 9387459 (Version 1)
Quarter: 2013Q2

REPORT INFORMATION
  Report Type: Spontaneous
  Country: JP (occurrence: None)
  Receive Date: 20130625
  Receipt Date: 20130625
  Transmission Date: 20140414
  Serious: Yes (Disabling, Other)
  Sender: FDA-Public Use
  Company Number: 0239592

PATIENT
  Age: 65 Year
  Sex: Male

DRUGS (3)
  1. TACHOSIL [Suspect]
     Indication: PROPHYLAXIS
  2. CEFMETAZOLE (CEFMETAZOLE) [Concomitant]
     Dosage: 1 SHEET OF REGULAR SIZE
     Dates: start: 20130307
  3. OMEPRAZOLE (OMEPRAZOLE) [Concomitant]

REACTIONS (3)
  - Ileus [None]
  - Abdominal adhesions [None]
  - Surgical procedure repeated [None]
